FAERS Safety Report 17261232 (Version 4)
Quarter: 2022Q1

REPORT INFORMATION
  Report Type: Other
  Country: US (occurrence: None)
  Receive Date: 20200113
  Receipt Date: 20220207
  Transmission Date: 20220423
  Serious: Yes (Other)
  Sender: FDA-Public Use
  Company Number: US-ROCHE-2518477

PATIENT

DRUGS (2)
  1. RITUXIMAB [Suspect]
     Active Substance: RITUXIMAB
     Indication: Mantle cell lymphoma
     Route: 065
  2. IBRUTINIB [Suspect]
     Active Substance: IBRUTINIB
     Indication: Mantle cell lymphoma
     Route: 065

REACTIONS (25)
  - Myelosuppression [Unknown]
  - Fatigue [Unknown]
  - Myalgia [Unknown]
  - Rash [Unknown]
  - Mucosal inflammation [Unknown]
  - Lymphopenia [Unknown]
  - Thrombocytopenia [Unknown]
  - Neutropenia [Unknown]
  - Anaemia [Unknown]
  - Diarrhoea [Unknown]
  - Stomatitis [Unknown]
  - Neuropathy peripheral [Unknown]
  - Nausea [Unknown]
  - Oedema peripheral [Unknown]
  - Dyspnoea [Unknown]
  - Infection [Unknown]
  - Dizziness [Unknown]
  - Dry eye [Unknown]
  - Constipation [Unknown]
  - Hyperglycaemia [Unknown]
  - Headache [Unknown]
  - Hepatic enzyme increased [Unknown]
  - Arthralgia [Unknown]
  - Atrial fibrillation [Unknown]
  - Hypertension [Unknown]
